FAERS Safety Report 16864479 (Version 1)
Quarter: 2019Q3

REPORT INFORMATION
  Report Type: Spontaneous
  Country: DE (occurrence: DE)
  Receive Date: 20190928
  Receipt Date: 20190928
  Transmission Date: 20191005
  Serious: Yes (Other)
  Sender: FDA-Public Use
  Company Number: DE-ACCORD-155896

PATIENT
  Age: 24 Year
  Sex: Female
  Weight: 55.5 kg

DRUGS (3)
  1. LEVETIRACETAM. [Suspect]
     Active Substance: LEVETIRACETAM
     Indication: JUVENILE MYOCLONIC EPILEPSY
     Dosage: 250 MG, 2X/DAY (BID), 250-0-250
     Route: 048
  2. RHOPHYLAC [Concomitant]
     Active Substance: HUMAN RHO(D) IMMUNE GLOBULIN
     Indication: PROPHYLAXIS
     Dosage: 300 UG, ONE TIME DOSE
     Route: 030
     Dates: start: 20131209, end: 20131209
  3. FEMIBION [Concomitant]
     Indication: PROPHYLAXIS
     Dosage: 0.8 MG, ONCE DAILY (QD)
     Route: 048
     Dates: start: 20130614

REACTIONS (2)
  - Premature delivery [Unknown]
  - Maternal exposure during pregnancy [Unknown]

NARRATIVE: CASE EVENT DATE: 20130516
